FAERS Safety Report 23948616 (Version 1)
Quarter: 2024Q2

REPORT INFORMATION
  Report Type: Spontaneous
  Country: US (occurrence: US)
  Receive Date: 20240607
  Receipt Date: 20240607
  Transmission Date: 20240716
  Serious: Yes (Hospitalization)
  Sender: FDA-Public Use
  Company Number: US-PROCTER+GAMBLE-PH24004448

PATIENT
  Age: 80 Year
  Sex: Female

DRUGS (4)
  1. ZZZQUIL NIGHTIME SLEEP-AID [Suspect]
     Active Substance: DIPHENHYDRAMINE HYDROCHLORIDE
     Indication: Insomnia
     Dosage: 2 LIQCAP (BETWEEN 1 AND 2 LIQUICAPS), 1 /DAY (ONCE AT NIGHT)
     Route: 048
     Dates: start: 20240407, end: 2024
  2. ZZZQUIL NIGHTIME SLEEP-AID [Suspect]
     Active Substance: DIPHENHYDRAMINE HYDROCHLORIDE
     Dosage: 1 LIQCAP (BETWEEN 1 AND 2 LIQUICAPS), 1 /DAY (ONCE AT NIGHT)
     Route: 048
     Dates: start: 2024, end: 2024
  3. ZZZQUIL NIGHTIME SLEEP-AID [Suspect]
     Active Substance: DIPHENHYDRAMINE HYDROCHLORIDE
     Dosage: 2 LIQCAP (BETWEEN 1 AND 2 LIQUICAPS), 1 /DAY (ONCE AT NIGHT)
     Route: 048
     Dates: end: 20240521
  4. PAXIL [Concomitant]
     Active Substance: PAROXETINE HYDROCHLORIDE

REACTIONS (10)
  - Hypertension [Unknown]
  - Flatulence [Not Recovered/Not Resolved]
  - Dizziness [Recovering/Resolving]
  - Tremor [Recovering/Resolving]
  - Nausea [Recovering/Resolving]
  - Decreased appetite [Not Recovered/Not Resolved]
  - Abdominal distension [Unknown]
  - Dysphagia [Unknown]
  - Incorrect product administration duration [Unknown]
  - Underdose [Unknown]

NARRATIVE: CASE EVENT DATE: 20240101
